FAERS Safety Report 9597657 (Version 1)
Quarter: 2013Q4

REPORT INFORMATION
  Report Type: Spontaneous
  Country: US (occurrence: US)
  Receive Date: 20131004
  Receipt Date: 20131004
  Transmission Date: 20140711
  Serious: No
  Sender: FDA-Public Use
  Company Number: US-AMGEN-USASP2013020357

PATIENT
  Age: 59 Year
  Sex: Female
  Weight: 73.47 kg

DRUGS (6)
  1. ENBREL [Suspect]
     Indication: PRODUCT USED FOR UNKNOWN INDICATION
     Dosage: 50 MG, QWK
     Route: 058
  2. MAXALT MLT [Concomitant]
     Dosage: 10 MG, UNK
  3. XANAX [Concomitant]
     Dosage: 0.25 MG, UNK
  4. PREDNISONE [Concomitant]
     Dosage: 2.5 MG, UNK
  5. VALTREX [Concomitant]
     Dosage: 500 MG, UNK
  6. ZOVIRAX                            /00587301/ [Concomitant]
     Dosage: 5%

REACTIONS (5)
  - Erythema [Unknown]
  - Rash [Unknown]
  - Contusion [Recovered/Resolved]
  - Blister [Unknown]
  - Oral mucosal blistering [Unknown]
